FAERS Safety Report 16330054 (Version 1)
Quarter: 2019Q2

REPORT INFORMATION
  Report Type: Spontaneous
  Country: US (occurrence: US)
  Receive Date: 20190411
  Receipt Date: 20190411
  Transmission Date: 20190711
  Serious: Yes (Other)
  Sender: FDA-Public Use
  Company Number: None

PATIENT
  Sex: Female
  Weight: 81.65 kg

DRUGS (6)
  1. CIPLA ALENDRONATE SODIUM [Suspect]
     Active Substance: ALENDRONATE SODIUM
     Indication: FALL
     Dosage: ?          QUANTITY:1 DF DOSAGE FORM;?
     Route: 048
  2. K-DUR [Concomitant]
     Active Substance: POTASSIUM CHLORIDE
  3. 1 A DAY VITAMINS [Concomitant]
  4. NAPRAXON [Concomitant]
  5. PRESSURE VISION [Concomitant]
  6. HYDRO [Concomitant]

REACTIONS (3)
  - Osteonecrosis of jaw [None]
  - Product use complaint [None]
  - Tooth disorder [None]

NARRATIVE: CASE EVENT DATE: 201811
